FAERS Safety Report 6134935-9 (Version None)
Quarter: 2009Q1

REPORT INFORMATION
  Report Type: 
  Country: None (occurrence: None)
  Receive Date: 20090327
  Receipt Date: 20080909
  Transmission Date: 20090719
  Serious: Yes (Death)
  Sender: FDA-Public Use
  Company Number: JP-ASTRAZENECA-2002AP03258

PATIENT
  Age: 17063 Day
  Sex: Male

DRUGS (15)
  1. IRESSA [Suspect]
     Indication: LARGE CELL CARCINOMA OF THE RESPIRATORY TRACT STAGE UNSPECIFIED
     Dosage: PT SPONTANEOUSLY STOPPED DRUG
     Route: 048
     Dates: start: 20021007, end: 20021011
  2. CODEINE SUL TAB [Concomitant]
     Route: 048
     Dates: start: 20020822, end: 20021011
  3. CRAVIT [Concomitant]
     Route: 048
     Dates: start: 20020822, end: 20021011
  4. DECADRON [Concomitant]
     Route: 048
     Dates: start: 20020822, end: 20021011
  5. GASTER [Concomitant]
     Route: 048
     Dates: start: 20020822, end: 20020924
  6. ZANTAC [Concomitant]
     Route: 048
     Dates: start: 20020925, end: 20021011
  7. THEOLONG [Concomitant]
     Route: 048
     Dates: start: 20020822, end: 20021011
  8. GABEXATE MESILATE [Concomitant]
     Route: 042
     Dates: start: 20020912, end: 20021011
  9. FRAGMIN [Concomitant]
     Route: 042
     Dates: start: 20020919, end: 20021004
  10. MAGNESIUM OXIDE [Concomitant]
     Route: 048
     Dates: start: 20020920, end: 20021006
  11. PURSENNID [Concomitant]
     Route: 048
     Dates: start: 20021007, end: 20021011
  12. PRIMPERAN [Concomitant]
     Route: 048
     Dates: start: 20020917, end: 20021011
  13. PARAPLATIN [Concomitant]
     Route: 042
     Dates: start: 20020904
  14. NAVELBINE [Concomitant]
     Route: 042
     Dates: start: 20020904
  15. KYTRIL [Concomitant]
     Route: 042
     Dates: start: 20020904

REACTIONS (2)
  - DISEASE PROGRESSION [None]
  - RESPIRATORY FAILURE [None]
